FAERS Safety Report 6100628-7 (Version None)
Quarter: 2009Q1

REPORT INFORMATION
  Report Type: 
  Country: None (occurrence: None)
  Receive Date: 20090303
  Receipt Date: 20090225
  Transmission Date: 20090719
  Serious: Yes (Death, Life-Threatening, Hospitalization, Other)
  Sender: FDA-Public Use
  Company Number: BE-GENENTECH-265266

PATIENT
  Sex: Female

DRUGS (9)
  1. TRASTUZUMAB [Suspect]
     Indication: BREAST CANCER METASTATIC
     Dosage: 432 MG, Q3W
     Dates: start: 20080610, end: 20080610
  2. DOCETAXEL [Suspect]
     Indication: BREAST CANCER METASTATIC
     Dosage: 113 MG, Q3W
     Route: 042
     Dates: start: 20080611, end: 20080611
  3. FUROSEMIDE [Concomitant]
     Indication: CARDIAC FAILURE
     Dosage: UNK
     Route: 048
     Dates: start: 20080501, end: 20080629
  4. LISINOPRIL [Concomitant]
     Indication: CARDIAC FAILURE
     Dosage: UNK
     Route: 048
     Dates: start: 20080501, end: 20080606
  5. MOLSIDOMINE [Concomitant]
     Indication: CARDIAC FAILURE
     Dosage: UNK
     Route: 048
     Dates: start: 20080501, end: 20080606
  6. DEXTROMETHORPHAN [Concomitant]
     Indication: DRUG USE FOR UNKNOWN INDICATION
     Dosage: UNK
     Route: 048
     Dates: start: 20080606, end: 20080608
  7. CODEINE PHOSPHATE [Concomitant]
     Indication: DRUG USE FOR UNKNOWN INDICATION
     Dosage: UNK
     Route: 048
     Dates: start: 20080608, end: 20080610
  8. DEXAMETHASONE [Concomitant]
     Indication: PREMEDICATION
     Dosage: UNK
     Dates: start: 20080609, end: 20080610
  9. OXYGEN [Concomitant]
     Indication: DRUG USE FOR UNKNOWN INDICATION

REACTIONS (2)
  - MULTI-ORGAN FAILURE [None]
  - RESPIRATORY DISTRESS [None]
